FAERS Safety Report 14080530 (Version 2)
Quarter: 2017Q4

REPORT INFORMATION
  Report Type: Spontaneous
  Country: US (occurrence: US)
  Receive Date: 20171012
  Receipt Date: 20171204
  Transmission Date: 20180321
  Serious: No
  Sender: FDA-Public Use
  Company Number: US-MYLANLABS-2017M1037863

PATIENT
  Sex: Male
  Weight: 22 kg

DRUGS (1)
  1. EPIPEN JR [Suspect]
     Active Substance: EPINEPHRINE
     Indication: ALLERGY TO STING
     Dosage: UNK

REACTIONS (2)
  - Device failure [Unknown]
  - No adverse event [Unknown]
